FAERS Safety Report 10629118 (Version 1)
Quarter: 2014Q4

REPORT INFORMATION
  Report Type: Spontaneous
  Country: GR (occurrence: GR)
  Receive Date: 20141205
  Receipt Date: 20141205
  Transmission Date: 20150529
  Serious: Yes (Other)
  Sender: FDA-Public Use
  Company Number: GR-BAYER-2014-173693

PATIENT
  Sex: Male

DRUGS (2)
  1. SALOSPIR [Suspect]
     Active Substance: ASPIRIN\CAFFEINE
     Dosage: UNK
  2. CIPROXIN [Suspect]
     Active Substance: CIPROFLOXACIN
     Dosage: UNK

REACTIONS (2)
  - Delirium [None]
  - Duodenal ulcer [None]
